FAERS Safety Report 19170000 (Version 1)
Quarter: 2021Q2

REPORT INFORMATION
  Report Type: Report from Study
  Country: BR (occurrence: BR)
  Receive Date: 20210422
  Receipt Date: 20210422
  Transmission Date: 20210717
  Serious: Yes (Other)
  Sender: FDA-Public Use
  Company Number: BR-TAKEDA-BR201941601

PATIENT
  Age: 31 Year
  Sex: Male

DRUGS (1)
  1. HEMO?8R [Suspect]
     Active Substance: ANTIHEMOPHILIC FACTOR, HUMAN RECOMBINANT
     Indication: FACTOR VIII DEFICIENCY
     Dosage: 2000 INTERNATIONAL UNIT, 3/WEEK
     Route: 042

REACTIONS (13)
  - Infusion site discolouration [Unknown]
  - Joint injury [Unknown]
  - Appendicectomy [Unknown]
  - Skin discolouration [Unknown]
  - Feeling of relaxation [Unknown]
  - Vein disorder [Unknown]
  - Knee deformity [Unknown]
  - Skin laceration [Unknown]
  - Muscle atrophy [Unknown]
  - Poor peripheral circulation [Unknown]
  - Injury [Unknown]
  - Tooth injury [Unknown]
  - Inappropriate schedule of product administration [Recovered/Resolved]

NARRATIVE: CASE EVENT DATE: 20210310
